FAERS Safety Report 5103561-2 (Version None)
Quarter: 2006Q3

REPORT INFORMATION
  Report Type: 
  Country: None (occurrence: None)
  Receive Date: 20060908
  Receipt Date: 20060822
  Transmission Date: 20061208
  Serious: Yes (Hospitalization)
  Sender: FDA-Public Use
  Company Number: US-2006-002602

PATIENT
  Age: 33 Year
  Sex: Female

DRUGS (2)
  1. BETASERON [Suspect]
     Indication: RELAPSING-REMITTING MULTIPLE SCLEROSIS
     Dosage: 8 MIU EVERY2D SUBCUTANEOUS
     Route: 058
     Dates: start: 20050808
  2. CORTICOSTEROIDS [Concomitant]

REACTIONS (3)
  - ABSCESS [None]
  - NO ADVERSE DRUG EFFECT [None]
  - WHITE BLOOD CELL COUNT INCREASED [None]
